FAERS Safety Report 8385426 (Version 2)
Quarter: 2015Q1

REPORT INFORMATION
  Report Type: Report from Study
  Country: US (occurrence: US)
  Receive Date: 20120202
  Receipt Date: 20150225
  Transmission Date: 20150721
  Serious: Yes (Death)
  Sender: FDA-Public Use
  Company Number: US-ROCHE-1035745

PATIENT
  Sex: Female

DRUGS (4)
  1. ZOFRAN [Concomitant]
     Active Substance: ONDANSETRON HYDROCHLORIDE
     Route: 042
  2. AVASTIN [Suspect]
     Active Substance: BEVACIZUMAB
     Indication: BREAST CANCER FEMALE
  3. AVASTIN [Suspect]
     Active Substance: BEVACIZUMAB
     Indication: OVARIAN CANCER
     Route: 042
  4. ABRAXANE [Concomitant]
     Active Substance: PACLITAXEL
     Route: 065

REACTIONS (6)
  - Swelling [Unknown]
  - Pain [Unknown]
  - Dizziness [Unknown]
  - Death [Fatal]
  - Oedema [Unknown]
  - Infection [Unknown]
